FAERS Safety Report 11885627 (Version 1)
Quarter: 2016Q1

REPORT INFORMATION
  Report Type: Spontaneous
  Country: US (occurrence: US)
  Receive Date: 20160104
  Receipt Date: 20160104
  Transmission Date: 20160526
  Serious: No
  Sender: FDA-Public Use
  Company Number: US-ASTRAZENECA-2015SF27076

PATIENT
  Age: 68 Year
  Sex: Male

DRUGS (1)
  1. BYDUREON [Suspect]
     Active Substance: EXENATIDE
     Route: 058
     Dates: start: 201508

REACTIONS (3)
  - Underdose [Unknown]
  - Injection site extravasation [Unknown]
  - Product quality issue [Unknown]

NARRATIVE: CASE EVENT DATE: 201508
